FAERS Safety Report 9772171 (Version 2)
Quarter: 2013Q4

REPORT INFORMATION
  Report Type: Spontaneous
  Country: US (occurrence: None)
  Receive Date: 20131011
  Receipt Date: 20131018
  Transmission Date: 20140711
  Serious: Yes (Hospitalization)
  Sender: FDA-Public Use
  Company Number: 2013-1602

PATIENT
  Age: 47 Year
  Sex: Male

DRUGS (5)
  1. KYPROLIS [Suspect]
     Indication: PLASMA CELL MYELOMA
     Route: 042
     Dates: start: 201303
  2. REVLIMID [Concomitant]
  3. DEXAMETHASONE (DEXAMETHASONE) (DEXAMETHASONE) [Concomitant]
  4. OMEPRAZOLE (OMEPRAZOLE) (OMEPRAZOLE) [Concomitant]
  5. MORPHINE (MORPHINE) (MORPHINE) [Concomitant]

REACTIONS (7)
  - Fatigue [None]
  - Nausea [None]
  - Fall [None]
  - Blood glucose increased [None]
  - Pulmonary embolism [None]
  - Local swelling [None]
  - Dyspnoea exertional [None]
